FAERS Safety Report 24194481 (Version 2)
Quarter: 2024Q3

REPORT INFORMATION
  Report Type: Spontaneous
  Country: US (occurrence: US)
  Receive Date: 20240809
  Receipt Date: 20240909
  Transmission Date: 20241016
  Serious: No
  Sender: PFIZER
  Company Number: US-PFIZER INC-202400229576

PATIENT
  Age: 11 Year
  Sex: Male

DRUGS (1)
  1. GENOTROPIN [Suspect]
     Active Substance: SOMATROPIN
     Indication: Blood growth hormone
     Dosage: 1.6 MG, DAILY
     Dates: start: 202206

REACTIONS (4)
  - Drug dose omission by device [Unknown]
  - Product knowledge deficit [Unknown]
  - Expired device used [Unknown]
  - Device information output issue [Unknown]
